FAERS Safety Report 8956024 (Version 1)
Quarter: 2012Q4

REPORT INFORMATION
  Report Type: 
  Country: US (occurrence: US)
  Receive Date: 20121210
  Receipt Date: 20121210
  Transmission Date: 20130627
  Serious: Yes (Hospitalization, Other)
  Sender: FDA-Public Use
  Company Number: US-BAYER-2012-127969

PATIENT
  Age: 33 Year
  Sex: Female

DRUGS (6)
  1. OCELLA [Suspect]
  2. YAZ [Suspect]
  3. YASMIN [Suspect]
     Indication: DYSFUNCTIONAL UTERINE BLEEDING
  4. METHADONE [Concomitant]
  5. NORCO [Concomitant]
  6. SOMA [Concomitant]

REACTIONS (3)
  - Pulmonary thrombosis [None]
  - Pulmonary embolism [None]
  - Off label use [None]
